FAERS Safety Report 13919563 (Version 1)
Quarter: 2017Q3

REPORT INFORMATION
  Report Type: Spontaneous
  Country: US (occurrence: None)
  Receive Date: 20170829
  Receipt Date: 20170829
  Transmission Date: 20171127
  Serious: No
  Sender: FDA-Public Use
  Company Number: None

PATIENT
  Age: 52 Year
  Sex: Female
  Weight: 65.77 kg

DRUGS (1)
  1. LIDOCAINE. [Suspect]
     Active Substance: LIDOCAINE
     Indication: NEUROPATHY PERIPHERAL
     Dosage: 1
     Route: 058
     Dates: start: 20170323, end: 20170823

REACTIONS (3)
  - Poor quality drug administered [None]
  - Product adhesion issue [None]
  - Drug effect decreased [None]

NARRATIVE: CASE EVENT DATE: 20170823
